FAERS Safety Report 5074713-5 (Version None)
Quarter: 2006Q3

REPORT INFORMATION
  Report Type: 
  Country: None (occurrence: None)
  Receive Date: 20060807
  Receipt Date: 20060725
  Transmission Date: 20061208
  Serious: Yes (Other)
  Sender: FDA-Public Use
  Company Number: 2006092620

PATIENT
  Sex: Female

DRUGS (4)
  1. MINIPRESS [Suspect]
     Indication: DRUG USE FOR UNKNOWN INDICATION
  2. SOLIAN (AMISULPRIDE) [Concomitant]
  3. EFFEXOR [Concomitant]
  4. RISPERIDONE [Concomitant]

REACTIONS (2)
  - EPISTAXIS [None]
  - VAGINAL HAEMORRHAGE [None]
